FAERS Safety Report 8885694 (Version 2)
Quarter: 2013Q4

REPORT INFORMATION
  Report Type: Spontaneous
  Country: US (occurrence: US)
  Receive Date: 20121101
  Receipt Date: 20131108
  Transmission Date: 20140711
  Serious: Yes (Death, Hospitalization)
  Sender: FDA-Public Use
  Company Number: US-PFIZER INC-2012267441

PATIENT
  Age: 91 Year
  Sex: Female
  Weight: 85.26 kg

DRUGS (12)
  1. AROMASIN [Suspect]
     Indication: BREAST CANCER
     Dosage: 25 MG, 1X/DAY
     Route: 048
     Dates: start: 20111212, end: 20121021
  2. METOPROLOL [Concomitant]
     Indication: CARDIAC DISORDER
     Dosage: 100 MG, 2X/DAY
  3. AMLODIPINE [Concomitant]
     Indication: BLOOD PRESSURE ABNORMAL
     Dosage: UNK, DAILY
  4. LISINOPRIL [Concomitant]
     Indication: BLOOD PRESSURE ABNORMAL
     Dosage: UNK, DAILY
  5. FUROSEMIDE [Concomitant]
     Dosage: 20 MG, ALTERNATE DAY
  6. FUROSEMIDE [Concomitant]
     Dosage: 40 MG, ALTERNATE DAY
  7. DOCUSATE SODIUM [Concomitant]
     Indication: FAECES HARD
     Dosage: UNK, DAILY
  8. LEVOTHYROXINE [Concomitant]
     Indication: THYROID DISORDER
     Dosage: UNK, DAILY
  9. GLIPIZIDE [Concomitant]
     Indication: BLOOD GLUCOSE ABNORMAL
     Dosage: UNK, DAILY
  10. KLOR-CON [Concomitant]
     Indication: MINERAL SUPPLEMENTATION
     Dosage: 10 MEQ, 2X/DAY
  11. ALLOPURINOL [Concomitant]
     Indication: GOUT
     Dosage: UNK
  12. WARFARIN [Concomitant]
     Indication: ANTICOAGULANT THERAPY
     Dosage: 2 MG, DAILY

REACTIONS (7)
  - Disease progression [Fatal]
  - Breast cancer [Fatal]
  - Urinary tract infection [Unknown]
  - Pyrexia [Recovered/Resolved]
  - Infection [Unknown]
  - Nervousness [Unknown]
  - Skin lesion [Unknown]
